FAERS Safety Report 15198272 (Version 2)
Quarter: 2018Q4

REPORT INFORMATION
  Report Type: Spontaneous
  Country: IT (occurrence: IT)
  Receive Date: 20180725
  Receipt Date: 20181203
  Transmission Date: 20190204
  Serious: Yes (Hospitalization, Other)
  Sender: FDA-Public Use
  Company Number: PHHY2018IT049840

PATIENT
  Age: 52 Year
  Sex: Male

DRUGS (7)
  1. DOCETAXEL. [Suspect]
     Active Substance: DOCETAXEL
     Indication: NEOPLASM MALIGNANT
     Dosage: 1 DF, QW
     Route: 065
  2. DOCETAXEL. [Suspect]
     Active Substance: DOCETAXEL
     Dosage: UNK (1 CYCLE)
     Route: 065
     Dates: start: 201506, end: 201506
  3. CISPLATIN. [Suspect]
     Active Substance: CISPLATIN
     Indication: PENILE CANCER
     Dosage: UNK
     Route: 065
  4. 5-FU [Concomitant]
     Active Substance: FLUOROURACIL
     Indication: PENILE CANCER
     Dosage: UNK
     Route: 065
  5. DOCETAXEL. [Suspect]
     Active Substance: DOCETAXEL
     Indication: PENILE CANCER
     Dosage: UNK (2 MONO WEEKLY CYCLES)
     Route: 065
  6. DOCETAXEL. [Suspect]
     Active Substance: DOCETAXEL
     Dosage: UNK (1 CYCLE)
     Route: 042
     Dates: start: 201607, end: 201607
  7. CAPECITABINE. [Concomitant]
     Active Substance: CAPECITABINE
     Indication: PENILE CANCER
     Dosage: UNK
     Route: 065

REACTIONS (11)
  - Haemolytic anaemia [Recovering/Resolving]
  - Blood creatinine increased [Recovering/Resolving]
  - Neurotoxicity [Unknown]
  - Condition aggravated [Recovering/Resolving]
  - Atypical haemolytic uraemic syndrome [Recovering/Resolving]
  - Thrombocytopenia [Recovered/Resolved]
  - Blood lactate dehydrogenase increased [Recovered/Resolved]
  - Blood bilirubin increased [Unknown]
  - Acute kidney injury [Recovering/Resolving]
  - Anuria [Not Recovered/Not Resolved]
  - Haemoglobinaemia [Recovered/Resolved]

NARRATIVE: CASE EVENT DATE: 2016
